FAERS Safety Report 5826293-1 (Version None)
Quarter: 2008Q3

REPORT INFORMATION
  Report Type: 
  Country: None (occurrence: None)
  Receive Date: 20080729
  Receipt Date: 20080717
  Transmission Date: 20090109
  Serious: Yes (Hospitalization)
  Sender: FDA-Public Use
  Company Number: JP-PFIZER INC-2008059688

PATIENT
  Age: 49 Year
  Sex: Female

DRUGS (5)
  1. MEDROL [Suspect]
     Dosage: DAILY DOSE:12MG
     Route: 048
  2. ASPIRIN [Concomitant]
     Route: 048
  3. NEORAL [Concomitant]
     Route: 048
  4. NICHI E-NATE [Concomitant]
     Indication: LIPIDS ABNORMAL
     Route: 048
  5. CPG [Concomitant]
     Route: 048

REACTIONS (1)
  - THROMBOSIS [None]
